FAERS Safety Report 8785791 (Version 1)
Quarter: 2012Q4

REPORT INFORMATION
  Report Type: 
  Country: FR (occurrence: FR)
  Receive Date: 20120914
  Receipt Date: 20120914
  Transmission Date: 20130627
  Serious: Yes (Hospitalization)
  Sender: FDA-Public Use
  Company Number: FR-GLAXOSMITHKLINE-B0827261A

PATIENT
  Age: 41 Year
  Sex: Female

DRUGS (4)
  1. ZELITREX [Suspect]
     Indication: HERPES VIRUS INFECTION
     Route: 048
     Dates: start: 20110409
  2. CELLCEPT [Suspect]
     Indication: PROPHYLAXIS AGAINST TRANSPLANT REJECTION
     Dosage: 500MG Twice per day
     Route: 048
     Dates: start: 200606, end: 20110412
  3. CEFPODOXIME PROXETIL [Suspect]
     Indication: SINUSITIS
     Route: 048
     Dates: start: 20110408
  4. PROGRAFT [Concomitant]
     Dosage: 5.5MG per day
     Dates: start: 2006

REACTIONS (1)
  - Agranulocytosis [Recovered/Resolved]
